FAERS Safety Report 9683455 (Version 1)
Quarter: 2013Q4

REPORT INFORMATION
  Report Type: Spontaneous
  Country: CA (occurrence: CA)
  Receive Date: 20131112
  Receipt Date: 20131112
  Transmission Date: 20140711
  Serious: Yes (Death)
  Sender: FDA-Public Use
  Company Number: CA-SA-2013SA115463

PATIENT
  Age: 56 Year
  Sex: Female
  Weight: 55.6 kg

DRUGS (5)
  1. CEREZYME [Suspect]
     Indication: GAUCHER^S DISEASE
     Dosage: DOSE:57.55 UNIT(S)/KILOGRAM BODYWEIGHT
     Route: 042
     Dates: start: 19990122, end: 20070614
  2. ALTACE [Concomitant]
     Indication: BLOOD PRESSURE INCREASED
     Dates: start: 2000, end: 200808
  3. LOPERAMIDE [Concomitant]
     Indication: GASTROOESOPHAGEAL REFLUX DISEASE
     Dates: start: 2000, end: 200808
  4. FOSAMAX [Concomitant]
     Indication: BONE PAIN
     Dates: start: 2000, end: 200808
  5. MS CONTIN [Concomitant]
     Indication: BONE PAIN
     Dates: start: 2000, end: 200808

REACTIONS (1)
  - Pulmonary hypertension [Fatal]
